FAERS Safety Report 25422870 (Version 1)
Quarter: 2025Q2

REPORT INFORMATION
  Report Type: Spontaneous
  Country: US (occurrence: None)
  Receive Date: 20250610
  Receipt Date: 20250610
  Transmission Date: 20250716
  Serious: No
  Sender: FDA-CTU
  Company Number: None

PATIENT
  Age: 44 Year
  Sex: Male

DRUGS (1)
  1. BUPROPION HYDROCHLORIDE [Suspect]
     Active Substance: BUPROPION HYDROCHLORIDE

REACTIONS (15)
  - Agitation [None]
  - Confusional state [None]
  - Palpitations [None]
  - Metabolic encephalopathy [None]
  - Partial seizures [None]
  - Intentional overdose [None]
  - Electrocardiogram QT prolonged [None]
  - Mental status changes [None]
  - Tangentiality [None]
  - Tremor [None]
  - Tongue movement disturbance [None]
  - Paranoia [None]
  - Toxicity to various agents [None]
  - Sinus tachycardia [None]
  - Leukocytosis [None]

NARRATIVE: CASE EVENT DATE: 20250516
